FAERS Safety Report 6623926-7 (Version None)
Quarter: 2010Q1

REPORT INFORMATION
  Report Type: 
  Country: None (occurrence: None)
  Receive Date: 20100305
  Receipt Date: 20100221
  Transmission Date: 20100710
  Serious: Yes (Death)
  Sender: FDA-Public Use
  Company Number: 10GB001262

PATIENT
  Age: 49 Year
  Sex: Male

DRUGS (4)
  1. PAROXETINE HCL [Suspect]
     Indication: ANXIETY
     Dosage: 20 MG, QD, 10 MG, QD, 20 MG, QD, 40 MG, QD
     Dates: start: 20001101, end: 20011001
  2. PAROXETINE HCL [Suspect]
     Indication: ANXIETY
     Dosage: 20 MG, QD, 10 MG, QD, 20 MG, QD, 40 MG, QD
     Dates: start: 20011001
  3. HYPNOTICS [Concomitant]
  4. SEDATIVES [Concomitant]

REACTIONS (4)
  - ANXIETY [None]
  - COMPLETED SUICIDE [None]
  - CONDITION AGGRAVATED [None]
  - STRESS [None]
